FAERS Safety Report 19573264 (Version 2)
Quarter: 2021Q4

REPORT INFORMATION
  Report Type: Report from Study
  Country: ES (occurrence: ES)
  Receive Date: 20210717
  Receipt Date: 20211005
  Transmission Date: 20220303
  Serious: Yes (Other)
  Sender: FDA-Public Use
  Company Number: ES-ROCHE-2869992

PATIENT
  Age: 71 Year
  Sex: Male
  Weight: 76 kg

DRUGS (7)
  1. ATEZOLIZUMAB [Suspect]
     Active Substance: ATEZOLIZUMAB
     Indication: Transitional cell carcinoma
     Dosage: ON 22/OCT/2020, HE RECEIVED THE MOST RECENT DOSE OF ATEZOLIZUMAB PRIOR TO THE EVENT.
     Route: 041
     Dates: start: 20180830
  2. CABOZANTINIB [Suspect]
     Active Substance: CABOZANTINIB
     Indication: Transitional cell carcinoma
     Route: 048
     Dates: start: 20180830
  3. CABOZANTINIB [Suspect]
     Active Substance: CABOZANTINIB
     Dosage: ON 18/NOV/2020, HE RECEIVED THE MOST RECENT DOSE OF CABOZANTINIB PRIOR TO THE EVENT.
     Route: 048
  4. ENALAPRIL MALEATE [Concomitant]
     Active Substance: ENALAPRIL MALEATE
  5. ENOXAPARIN SODIUM [Concomitant]
     Active Substance: ENOXAPARIN SODIUM
  6. VIDESIL [Concomitant]
  7. PREDNISONE ACETATE [Concomitant]
     Active Substance: PREDNISONE ACETATE

REACTIONS (1)
  - Nephritis [Not Recovered/Not Resolved]

NARRATIVE: CASE EVENT DATE: 20201216
